FAERS Safety Report 9134300 (Version 2)
Quarter: 2013Q4

REPORT INFORMATION
  Report Type: Spontaneous
  Country: US (occurrence: US)
  Receive Date: 20130304
  Receipt Date: 20131209
  Transmission Date: 20140711
  Serious: No
  Sender: FDA-Public Use
  Company Number: US-JNJFOC-20130106313

PATIENT
  Age: 48 Year
  Sex: Male
  Weight: 78.93 kg

DRUGS (2)
  1. INVEGA SUSTENNA [Suspect]
     Indication: SCHIZOPHRENIA
     Dosage: ONE 117 MG AND ONE 234 MG
     Route: 030
     Dates: start: 201210
  2. INVEGA SUSTENNA [Suspect]
     Indication: SCHIZOPHRENIA
     Route: 030

REACTIONS (3)
  - Therapeutic response decreased [Unknown]
  - Incorrect dose administered [Not Recovered/Not Resolved]
  - Injection site nodule [Recovered/Resolved]
